FAERS Safety Report 16025424 (Version 4)
Quarter: 2019Q2

REPORT INFORMATION
  Report Type: Report from Study
  Country: AU (occurrence: AU)
  Receive Date: 20190301
  Receipt Date: 20190614
  Transmission Date: 20190711
  Serious: Yes (Hospitalization, Other)
  Sender: FDA-Public Use
  Company Number: AU-AMGEN-AUSCT2019033021

PATIENT
  Age: 39 Year
  Sex: Female

DRUGS (2)
  1. AIMOVIG [Suspect]
     Active Substance: ERENUMAB-AOOE
     Dosage: 140 MILLIGRAM
     Route: 065
     Dates: start: 20190208
  2. AIMOVIG [Suspect]
     Active Substance: ERENUMAB-AOOE
     Indication: MIGRAINE
     Dosage: 140 MILLIGRAM, Q4WK
     Route: 058
     Dates: start: 20190110

REACTIONS (19)
  - Skin swelling [Recovering/Resolving]
  - Chest pain [Recovering/Resolving]
  - Abdominal pain upper [Recovering/Resolving]
  - Hypersomnia [Unknown]
  - Nausea [Recovering/Resolving]
  - Dyspnoea [Recovering/Resolving]
  - Fatigue [Recovering/Resolving]
  - Fall [Recovering/Resolving]
  - Loss of consciousness [Unknown]
  - Influenza like illness [Recovering/Resolving]
  - Myalgia [Recovering/Resolving]
  - Dry mouth [Recovering/Resolving]
  - Abdominal discomfort [Unknown]
  - Skin oedema [Recovering/Resolving]
  - Organ failure [Unknown]
  - Arthralgia [Recovering/Resolving]
  - Cognitive disorder [Recovering/Resolving]
  - Vision blurred [Recovering/Resolving]
  - Asthenia [Recovering/Resolving]

NARRATIVE: CASE EVENT DATE: 20190208
